FAERS Safety Report 7722682-9 (Version None)
Quarter: 2011Q3

REPORT INFORMATION
  Report Type: 
  Country: None (occurrence: None)
  Receive Date: 20110831
  Receipt Date: 20110822
  Transmission Date: 20111222
  Serious: Yes (Hospitalization, Other)
  Sender: FDA-Public Use
  Company Number: US-ASTRAZENECA-2011SE14473

PATIENT
  Age: 63 Year
  Sex: Female
  Weight: 73 kg

DRUGS (9)
  1. LASIX [Concomitant]
  2. PLAVIX [Concomitant]
  3. NEXIUM [Suspect]
     Indication: GASTROOESOPHAGEAL REFLUX DISEASE
     Route: 048
     Dates: start: 20081201
  4. LISINOPRIL [Concomitant]
     Indication: HYPERTENSION
     Route: 048
  5. METFORMIN [Concomitant]
     Indication: TYPE 2 DIABETES MELLITUS
  6. LIPITOR [Concomitant]
  7. LANTUS [Concomitant]
     Indication: TYPE 2 DIABETES MELLITUS
     Route: 058
  8. TENORMIN [Concomitant]
  9. COREG [Concomitant]

REACTIONS (7)
  - CARDIAC FAILURE CONGESTIVE [None]
  - MYOCARDIAL INFARCTION [None]
  - PERIPHERAL VASCULAR DISORDER [None]
  - CARDIAC VALVE DISEASE [None]
  - NON-SMALL CELL LUNG CANCER STAGE I [None]
  - DYSPEPSIA [None]
  - CHRONIC OBSTRUCTIVE PULMONARY DISEASE [None]
